FAERS Safety Report 13791418 (Version 1)
Quarter: 2017Q3

REPORT INFORMATION
  Report Type: Spontaneous
  Country: US (occurrence: US)
  Receive Date: 20170725
  Receipt Date: 20170725
  Transmission Date: 20171127
  Serious: No
  Sender: FDA-Public Use
  Company Number: US-009507513-1707USA006317

PATIENT
  Age: 19 Year
  Sex: Female
  Weight: 70.3 kg

DRUGS (2)
  1. NUVARING [Suspect]
     Active Substance: ETHINYL ESTRADIOL\ETONOGESTREL
     Dosage: 1 RING, ^24 DAYS IN, 4 DAYS OUT OR 24 DAYS STRAIGHT NO BREAK^
     Route: 067
  2. NUVARING [Suspect]
     Active Substance: ETHINYL ESTRADIOL\ETONOGESTREL
     Dosage: 1 RING, ^24 DAYS IN, 4 DAYS OUT OR 24 DAYS STRAIGHT NO BREAK^
     Route: 067
     Dates: start: 20170630

REACTIONS (7)
  - Incorrect drug administration duration [Unknown]
  - Inappropriate schedule of drug administration [Unknown]
  - Headache [Unknown]
  - Mood altered [Unknown]
  - Hypoaesthesia [Unknown]
  - Product storage error [Unknown]
  - Nausea [Unknown]

NARRATIVE: CASE EVENT DATE: 20170630
